FAERS Safety Report 6558559-4 (Version None)
Quarter: 2010Q1

REPORT INFORMATION
  Report Type: 
  Country: None (occurrence: None)
  Receive Date: 20100129
  Receipt Date: 20100122
  Transmission Date: 20100710
  Serious: Yes (Hospitalization)
  Sender: FDA-Public Use
  Company Number: JP-JNJFOC-20090800638

PATIENT
  Sex: Male
  Weight: 75.2 kg

DRUGS (14)
  1. FENTANYL [Suspect]
     Indication: PAIN
     Route: 062
  2. FENTANYL [Suspect]
     Route: 062
  3. FENTANYL [Suspect]
     Route: 062
  4. FENTANYL [Suspect]
     Route: 062
  5. FENTANYL [Suspect]
     Route: 062
  6. FUROSEMIDE [Concomitant]
     Indication: HYPERTENSION
     Route: 048
  7. ARTIST [Concomitant]
     Indication: HYPERTENSION
     Route: 048
  8. AMLODIN OD [Concomitant]
     Indication: HYPERTENSION
     Route: 048
  9. ETIZOLAM [Concomitant]
     Indication: PAIN
     Route: 048
  10. MEXILETINE HYDROCHLORIDE [Concomitant]
     Indication: PAIN
     Route: 048
  11. AZULENE [Concomitant]
     Indication: GASTROINTESTINAL DISORDER
     Route: 048
  12. ASPIRIN [Concomitant]
     Indication: CEREBRAL INFARCTION
     Route: 048
  13. CEROCRAL [Concomitant]
     Indication: PAIN
     Route: 048
  14. GABAPEN [Concomitant]
     Indication: PAIN
     Route: 048

REACTIONS (1)
  - ALTERED STATE OF CONSCIOUSNESS [None]
